FAERS Safety Report 19578683 (Version 1)
Quarter: 2021Q3

REPORT INFORMATION
  Report Type: Spontaneous
  Country: NL (occurrence: NL)
  Receive Date: 20210719
  Receipt Date: 20210719
  Transmission Date: 20211014
  Serious: Yes (Life-Threatening, Hospitalization)
  Sender: FDA-Public Use
  Company Number: NL-ASTRAZENECA-2021A621424

PATIENT
  Age: 65 Year
  Sex: Male
  Weight: 85 kg

DRUGS (8)
  1. GEMFIBROZIL. [Suspect]
     Active Substance: GEMFIBROZIL
     Indication: HYPERTRIGLYCERIDAEMIA
     Dosage: 2 X PER DAILY 900 MG
     Route: 065
     Dates: start: 20140101, end: 20210613
  2. ASCAL BRISPER CARDIO NEURO [Concomitant]
     Active Substance: CARBASPIRIN CALCIUM
     Dosage: 1 DD 100 MG
  3. EZETIMIB [Concomitant]
     Active Substance: EZETIMIBE
     Dosage: TABLET, 10 MG (MILLIGRAM)
  4. CRESTOR [Suspect]
     Active Substance: ROSUVASTATIN CALCIUM
     Indication: HYPERCHOLESTEROLAEMIA
     Dosage: 1 X PER DAY 1 PIECE
     Route: 065
     Dates: start: 20000101, end: 20210612
  5. ALLOPURINOL. [Concomitant]
     Active Substance: ALLOPURINOL
     Dosage: TABLET, 300 MG (MILLIGRAM)
  6. COVERSYL [Concomitant]
     Active Substance: PERINDOPRIL
     Dosage: TABLET, 10 MG (MILLIGRAM)
     Route: 065
  7. PFIZER?BIONTECH COVID?19 VACCINE [Suspect]
     Active Substance: TOZINAMERAN
     Indication: COVID-19 IMMUNISATION
     Dosage: 1.0DF UNKNOWN
     Route: 065
     Dates: start: 20210603
  8. DILTIAZEM. [Concomitant]
     Active Substance: DILTIAZEM
     Dosage: MODIFIED?RELEASE CAPSULE, 200 MG (MILLIGRAMS)

REACTIONS (5)
  - Arthralgia [Recovered/Resolved]
  - Autoimmune disorder [Recovering/Resolving]
  - Myalgia [Recovered/Resolved]
  - Acute kidney injury [Recovering/Resolving]
  - Rhabdomyolysis [Recovering/Resolving]

NARRATIVE: CASE EVENT DATE: 20210603
